FAERS Safety Report 9293386 (Version 1)
Quarter: 2013Q2

REPORT INFORMATION
  Report Type: Spontaneous
  Country: CA (occurrence: CA)
  Receive Date: 20130516
  Receipt Date: 20130516
  Transmission Date: 20140414
  Serious: Yes (Other)
  Sender: FDA-Public Use
  Company Number: CA-009507513-1305CAN009374

PATIENT
  Sex: Female

DRUGS (1)
  1. VICTRELIS TRIPLE [Suspect]
     Indication: PRODUCT USED FOR UNKNOWN INDICATION

REACTIONS (2)
  - Delirium [Not Recovered/Not Resolved]
  - Psychotic disorder [Not Recovered/Not Resolved]
